FAERS Safety Report 17734116 (Version 4)
Quarter: 2021Q4

REPORT INFORMATION
  Report Type: Spontaneous
  Country: US (occurrence: US)
  Receive Date: 20200501
  Receipt Date: 20211025
  Transmission Date: 20220303
  Serious: Yes (Other)
  Sender: FDA-Public Use
  Company Number: US-PFIZER INC-2020175193

PATIENT
  Age: 59 Year
  Sex: Male

DRUGS (3)
  1. LYRICA [Suspect]
     Active Substance: PREGABALIN
     Indication: Neuropathy peripheral
     Dosage: UNK
  2. LYRICA [Suspect]
     Active Substance: PREGABALIN
     Indication: Pain
     Dosage: 200 MG, 3X/DAY (1 CAPSULE TID (THREE TIMES A DAY))
  3. LYRICA [Suspect]
     Active Substance: PREGABALIN
     Dosage: 200 MG, 4X/DAY (1 TO 3 HOURS BEFORE BEDTIME ORALLY FOUR TIMES A DAY (QID))
     Route: 048

REACTIONS (4)
  - Loss of consciousness [Unknown]
  - Drug abuse [Unknown]
  - Pain [Unknown]
  - Prescribed overdose [Unknown]
